FAERS Safety Report 7405257-0 (Version None)
Quarter: 2011Q1

REPORT INFORMATION
  Report Type: 
  Country: None (occurrence: None)
  Receive Date: 20110330
  Receipt Date: 20110309
  Transmission Date: 20110831
  Serious: Yes (Life-Threatening, Other)
  Sender: FDA-Public Use
  Company Number: 2011SP000089

PATIENT
  Age: 64 Year
  Sex: Male

DRUGS (1)
  1. ADENOSINE [Suspect]
     Indication: SUPRAVENTRICULAR TACHYCARDIA
     Dosage: 6 MG;IV
     Route: 042

REACTIONS (1)
  - CARDIO-RESPIRATORY ARREST [None]
